FAERS Safety Report 7472286-0 (Version None)
Quarter: 2011Q2

REPORT INFORMATION
  Report Type: 
  Country: None (occurrence: None)
  Receive Date: 20110511
  Receipt Date: 20110422
  Transmission Date: 20111010
  Serious: No
  Sender: FDA-Public Use
  Company Number: US-B.I. PHARMACEUTICALS,INC./RIDGEFIELD-2011-BP-05326BP

PATIENT
  Sex: Male

DRUGS (9)
  1. JANUVIA [Concomitant]
     Indication: DIABETES MELLITUS
  2. LIPITOR [Concomitant]
  3. LISINOPRIL [Concomitant]
     Indication: HYPERTENSION
  4. GLIPIZIDE [Concomitant]
     Indication: MUSCLE SPASMS
  5. LANCID [Concomitant]
     Indication: DIABETES MELLITUS
  6. LANTUS [Concomitant]
  7. PRADAXA [Suspect]
     Indication: ATRIAL FIBRILLATION
     Dosage: 300 MG
     Route: 048
     Dates: start: 20110204, end: 20110208
  8. PRADAXA [Suspect]
     Indication: EXTRASYSTOLES
  9. ACTOS [Concomitant]
     Indication: DIABETES MELLITUS

REACTIONS (4)
  - INFLAMMATION [None]
  - DIARRHOEA [None]
  - FLATULENCE [None]
  - RECTAL HAEMORRHAGE [None]
